FAERS Safety Report 11372826 (Version 1)
Quarter: 2015Q3

REPORT INFORMATION
  Report Type: Spontaneous
  Country: US (occurrence: US)
  Receive Date: 20150811
  Receipt Date: 20150811
  Transmission Date: 20151125
  Serious: No
  Sender: FDA-Public Use
  Company Number: US-ELI_LILLY_AND_COMPANY-US201112007099

PATIENT
  Sex: Male

DRUGS (5)
  1. AXIRON [Suspect]
     Active Substance: TESTOSTERONE
     Dosage: 120MG, DAILY
  2. AXIRON [Suspect]
     Active Substance: TESTOSTERONE
     Indication: BLOOD TESTOSTERONE DECREASED
     Dosage: 30 MG UNDER EACH ARM PER DAY
     Route: 061
     Dates: start: 201112
  3. AXIRON [Suspect]
     Active Substance: TESTOSTERONE
     Dosage: 90 MG, UNK
     Dates: start: 201201
  4. CIALIS [Concomitant]
     Active Substance: TADALAFIL
     Indication: PRODUCT USED FOR UNKNOWN INDICATION
     Route: 065
  5. AXIRON [Suspect]
     Active Substance: TESTOSTERONE
     Dosage: 30 MG, UNK
     Route: 061

REACTIONS (13)
  - Pain [Unknown]
  - Vitamin D decreased [Unknown]
  - Blood testosterone decreased [Recovered/Resolved]
  - Fatigue [Unknown]
  - Asthenia [Unknown]
  - Incorrect dose administered [Recovered/Resolved]
  - Drug ineffective [Unknown]
  - Wrong technique in product usage process [Unknown]
  - Depression [Unknown]
  - Haematocrit increased [Unknown]
  - Blood testosterone decreased [Unknown]
  - Loss of libido [Unknown]
  - Feeling abnormal [Unknown]
